FAERS Safety Report 22157080 (Version 2)
Quarter: 2023Q2

REPORT INFORMATION
  Report Type: Report from Study
  Country: US (occurrence: US)
  Receive Date: 20230330
  Receipt Date: 20230406
  Transmission Date: 20230721
  Serious: Yes (Death, Other)
  Sender: FDA-Public Use
  Company Number: US-GILEAD-2023-0622268

PATIENT
  Age: 59 Year
  Sex: Male

DRUGS (2)
  1. SOFOSBUVIR\VELPATASVIR [Suspect]
     Active Substance: SOFOSBUVIR\VELPATASVIR
     Indication: Hepatitis C
     Dosage: 1 DOSAGE FORM, QD (400MG/100MG, 28 TABLETS, TAKE 1 TABLET BY MOUTH ONCE DAILY)
     Route: 048
     Dates: start: 20230223
  2. SOFOSBUVIR\VELPATASVIR [Suspect]
     Active Substance: SOFOSBUVIR\VELPATASVIR
     Dosage: 1 DOSAGE FORM, QD, 400/100MG, ORAL, ONCE PER DAY
     Route: 048
     Dates: start: 20230221

REACTIONS (1)
  - Death [Fatal]

NARRATIVE: CASE EVENT DATE: 20230327
